FAERS Safety Report 13536847 (Version 2)
Quarter: 2017Q2

REPORT INFORMATION
  Report Type: Report from Study
  Country: IN (occurrence: IN)
  Receive Date: 20170511
  Receipt Date: 20170515
  Transmission Date: 20170830
  Serious: Yes (Death, Hospitalization)
  Sender: FDA-Public Use
  Company Number: IN-EISAI MEDICAL RESEARCH-EC-2017-027407

PATIENT
  Age: 52 Year
  Sex: Female
  Weight: 57 kg

DRUGS (6)
  1. HALAVEN [Suspect]
     Active Substance: ERIBULIN MESYLATE
     Route: 041
     Dates: start: 20170124, end: 20170225
  2. HALAVEN [Suspect]
     Active Substance: ERIBULIN MESYLATE
     Route: 041
     Dates: start: 20170110, end: 20170110
  3. NAVELBINE [Concomitant]
     Active Substance: VINORELBINE TARTRATE
  4. HALAVEN [Suspect]
     Active Substance: ERIBULIN MESYLATE
     Indication: BREAST CANCER METASTATIC
     Route: 041
     Dates: start: 20170103, end: 20170103
  5. AVASTIN [Concomitant]
     Active Substance: BEVACIZUMAB
  6. GLIMULIN [Concomitant]

REACTIONS (1)
  - Jaundice [Fatal]

NARRATIVE: CASE EVENT DATE: 201703
